FAERS Safety Report 6167727-5 (Version None)
Quarter: 2009Q2

REPORT INFORMATION
  Report Type: 
  Country: None (occurrence: None)
  Receive Date: 20090427
  Receipt Date: 20090415
  Transmission Date: 20091009
  Serious: Yes (Life-Threatening, Hospitalization)
  Sender: FDA-Public Use
  Company Number: TW-RANBAXY-2009RR-21839

PATIENT
  Age: 9 Year
  Sex: Female

DRUGS (17)
  1. PARACETAMOL [Suspect]
     Indication: TOOTHACHE
     Dosage: 120 MG, UNK
     Route: 048
  2. PARACETAMOL [Suspect]
     Dosage: 100 MG, UNK
     Route: 048
  3. PARACETAMOL [Suspect]
     Dosage: 300 MG, UNK
  4. MEFENAMIC ACID [Concomitant]
     Dosage: 250 MG, UNK
  5. MEFENAMIC ACID [Concomitant]
     Dosage: 200 MG, UNK
  6. ACETAMINOPHEN [Concomitant]
     Indication: SKIN TEST
     Dosage: UNK
  7. ACETAMINOPHEN [Concomitant]
     Dosage: 50 UNK, UNK
  8. ACETAMINOPHEN [Concomitant]
     Dosage: UNK MG/ML, UNK
     Route: 058
  9. ACETAMINOPHEN [Concomitant]
     Dosage: 50 MG, UNK
  10. ACETAMINOPHEN [Concomitant]
     Dosage: 100 MG, UNK
  11. LYSINE ACETYLSALICYLATE [Concomitant]
     Indication: SKIN TEST
     Dosage: UNK
  12. LYSINE ACETYLSALICYLATE [Concomitant]
     Dosage: UNK
  13. ASPIRIN [Concomitant]
     Dosage: 50 MG, UNK
     Route: 048
  14. ASPIRIN [Concomitant]
     Dosage: 100 MG, UNK
     Route: 048
  15. ASPIRIN [Concomitant]
     Dosage: 250 MG, UNK
     Route: 048
  16. ASPIRIN [Concomitant]
     Dosage: 500 MG, UNK
     Route: 048
  17. HISTAMINE PHOSPHATE [Concomitant]
     Dosage: UNK

REACTIONS (3)
  - ANAPHYLACTIC REACTION [None]
  - HYPOTENSION [None]
  - URTICARIA [None]
